FAERS Safety Report 9617228 (Version 2)
Quarter: 2013Q4

REPORT INFORMATION
  Report Type: Spontaneous
  Country: JP (occurrence: JP)
  Receive Date: 20131011
  Receipt Date: 20131029
  Transmission Date: 20140711
  Serious: Yes (Hospitalization, Other)
  Sender: FDA-Public Use
  Company Number: JP-B.I. PHARMACEUTICALS,INC./RIDGEFIELD-2013-BI-32050NB

PATIENT
  Age: 74 Year
  Sex: Female

DRUGS (2)
  1. PRAZAXA [Suspect]
     Indication: CEREBROVASCULAR ACCIDENT PROPHYLAXIS
     Dosage: 220 MG
     Route: 048
     Dates: start: 20130913, end: 20131002
  2. BASEN OD [Concomitant]
     Indication: DIABETES MELLITUS
     Dosage: 0.3 MG
     Route: 048

REACTIONS (3)
  - Hepatic function abnormal [Recovered/Resolved]
  - Cholecystitis [Recovered/Resolved]
  - Decreased appetite [Recovered/Resolved]
